FAERS Safety Report 5021403-0 (Version None)
Quarter: 2006Q2

REPORT INFORMATION
  Report Type: 
  Country: None (occurrence: None)
  Receive Date: 20060605
  Receipt Date: 20060523
  Transmission Date: 20061013
  Serious: Yes (Other)
  Sender: FDA-Public Use
  Company Number: 2005126132

PATIENT
  Sex: Female
  Weight: 68.9467 kg

DRUGS (1)
  1. BEXTRA [Suspect]
     Indication: SHOULDER PAIN
     Dosage: 40 MG (20 MG, 2 IN 1 D)
     Dates: start: 19990101, end: 20020101

REACTIONS (1)
  - STEVENS-JOHNSON SYNDROME [None]
